FAERS Safety Report 25467021 (Version 2)
Quarter: 2025Q3

REPORT INFORMATION
  Report Type: Spontaneous
  Country: US (occurrence: US)
  Receive Date: 20250623
  Receipt Date: 20250710
  Transmission Date: 20251021
  Serious: No
  Sender: GILEAD
  Company Number: US-GILEAD-2025-0717777

PATIENT
  Sex: Male

DRUGS (1)
  1. BIKTARVY [Suspect]
     Active Substance: BICTEGRAVIR SODIUM\EMTRICITABINE\TENOFOVIR ALAFENAMIDE FUMARATE
     Indication: HIV infection
     Route: 065

REACTIONS (3)
  - Rhinorrhoea [Unknown]
  - Diarrhoea [Unknown]
  - Abdominal discomfort [Unknown]
